FAERS Safety Report 5351182-9 (Version None)
Quarter: 2007Q2

REPORT INFORMATION
  Report Type: 
  Country: None (occurrence: None)
  Receive Date: 20070608
  Receipt Date: 20070531
  Transmission Date: 20071010
  Serious: Yes (Other)
  Sender: FDA-Public Use
  Company Number: US-PFIZER INC-2007036623

PATIENT
  Sex: Female
  Weight: 95.454 kg

DRUGS (3)
  1. CHANTIX [Suspect]
     Indication: SMOKING CESSATION THERAPY
     Dates: start: 20070201, end: 20070201
  2. LEVOXYL [Concomitant]
     Indication: THYROID DISORDER
     Dosage: TEXT:0.125-FREQ:DAILY
  3. ALL OTHER THERAPEUTIC PRODUCTS [Concomitant]

REACTIONS (6)
  - ABDOMINAL PAIN UPPER [None]
  - DELUSION [None]
  - INSOMNIA [None]
  - MYALGIA [None]
  - NASOPHARYNGEAL DISORDER [None]
  - PANIC DISORDER [None]
